FAERS Safety Report 10424130 (Version 3)
Quarter: 2015Q1

REPORT INFORMATION
  Report Type: Spontaneous
  Country: US (occurrence: None)
  Receive Date: 20140722
  Receipt Date: 20150120
  Transmission Date: 20150720
  Serious: No
  Sender: FDA-Public Use
  Company Number: AEGR000466

PATIENT
  Age: 50 Year
  Sex: Male
  Weight: 95.7 kg

DRUGS (8)
  1. JUXTAPID [Suspect]
     Active Substance: LOMITAPIDE MESYLATE
     Indication: TYPE IIA HYPERLIPIDAEMIA
     Route: 048
     Dates: start: 201403, end: 201405
  2. OMEPRAZOLE (OMEPRAZOLE) [Concomitant]
     Active Substance: OMEPRAZOLE
  3. SULFASALAZINE (SULFASALAZINE) [Concomitant]
     Active Substance: SULFASALAZINE
  4. BABY ASPIRIN (ACETYLASLICYLIC ACID) [Concomitant]
  5. LISINOPRIL (LISINOPRIL) [Concomitant]
     Active Substance: LISINOPRIL
  6. METOPROLOL (METOPROLOL) [Concomitant]
     Active Substance: METOPROLOL
  7. PERCOCET (OXYCODONE HYDROCHLORIDE, PARACETAMOL) [Concomitant]
  8. FENOFIBRATE (FENOFIBRATE) [Concomitant]
     Active Substance: FENOFIBRATE

REACTIONS (8)
  - Abdominal pain upper [None]
  - Low density lipoprotein abnormal [None]
  - Gastrointestinal disorder [None]
  - Abdominal discomfort [None]
  - Diarrhoea [None]
  - Inappropriate schedule of drug administration [None]
  - Blood glucose increased [None]
  - Muscle spasms [None]

NARRATIVE: CASE EVENT DATE: 201404
